FAERS Safety Report 7098881-9 (Version None)
Quarter: 2010Q4

REPORT INFORMATION
  Report Type: 
  Country: None (occurrence: None)
  Receive Date: 20101112
  Receipt Date: 20101108
  Transmission Date: 20110411
  Serious: Yes (Life-Threatening)
  Sender: FDA-Public Use
  Company Number: GB-ROCHE-739594

PATIENT
  Age: 83 Year
  Sex: Female

DRUGS (8)
  1. NAPROXEN [Suspect]
     Route: 048
     Dates: start: 20101020, end: 20101023
  2. LANSOPRAZOLE [Concomitant]
  3. MORPHINE SULFATE [Concomitant]
     Dates: start: 20101020
  4. MORPHINE SULFATE [Concomitant]
  5. OXYCONTIN [Concomitant]
     Dates: end: 20101020
  6. PREGABALIN [Concomitant]
     Dates: start: 20101020
  7. PREGABALIN [Concomitant]
     Dates: end: 20101020
  8. PREGABALIN [Concomitant]

REACTIONS (4)
  - HEPATIC FUNCTION ABNORMAL [None]
  - LIVER FUNCTION TEST ABNORMAL [None]
  - NARCOTIC INTOXICATION [None]
  - RENAL FAILURE ACUTE [None]
